FAERS Safety Report 7734120-0 (Version None)
Quarter: 2011Q3

REPORT INFORMATION
  Report Type: 
  Country: None (occurrence: None)
  Receive Date: 20110907
  Receipt Date: 20110826
  Transmission Date: 20111222
  Serious: Yes (Hospitalization)
  Sender: FDA-Public Use
  Company Number: DE-ROCHE-800990

PATIENT
  Sex: Female
  Weight: 65 kg

DRUGS (6)
  1. BEVACIZUMAB [Suspect]
     Dosage: 4TH CYCLE
     Route: 042
     Dates: start: 20090505
  2. ZOMETA [Suspect]
     Dosage: CYCLES 1-3
     Route: 042
  3. DOCETAXEL [Suspect]
     Dosage: CYCLES 1-3
     Route: 042
  4. ZOMETA [Suspect]
     Dosage: 4TH CYCLE
     Route: 042
     Dates: start: 20090505
  5. BEVACIZUMAB [Suspect]
     Dosage: CYCLES 1-3
     Route: 042
  6. DOCETAXEL [Suspect]
     Dosage: 4TH CYCLE
     Route: 042
     Dates: start: 20090505

REACTIONS (5)
  - PALMAR-PLANTAR ERYTHRODYSAESTHESIA SYNDROME [None]
  - NEUTROPENIA [None]
  - GENERAL PHYSICAL HEALTH DETERIORATION [None]
  - LEUKOPENIA [None]
  - ARTHRALGIA [None]
